FAERS Safety Report 5125778-3 (Version None)
Quarter: 2006Q3

REPORT INFORMATION
  Report Type: 
  Country: None (occurrence: None)
  Receive Date: 20060815
  Receipt Date: 20060130
  Transmission Date: 20061208
  Serious: Yes (Hospitalization)
  Sender: FDA-Public Use
  Company Number: 2006014856

PATIENT
  Sex: Female
  Weight: 56.246 kg

DRUGS (2)
  1. ROGAINE [Suspect]
     Indication: ALOPECIA
     Dosage: ONE ML TWICE DAILY, TOPICAL
     Route: 061
     Dates: start: 20050101, end: 20060104
  2. SUDAFED SINUS (PARACETAMOL, PSEUDOEPHEDRINE) [Concomitant]

REACTIONS (1)
  - PARAESTHESIA [None]
